FAERS Safety Report 18175827 (Version 1)
Quarter: 2020Q3

REPORT INFORMATION
  Report Type: Spontaneous
  Country: AT (occurrence: AT)
  Receive Date: 20200820
  Receipt Date: 20200820
  Transmission Date: 20201103
  Serious: Yes (Disabling, Other)
  Sender: FDA-Public Use
  Company Number: AT-PORTOLA PHARMACEUTICALS, INC.-2020AT000135

PATIENT

DRUGS (14)
  1. DESMOPRESSIN [Concomitant]
     Active Substance: DESMOPRESSIN
     Indication: PROCOAGULANT THERAPY
     Dosage: 30 MCG, UNK
  2. FRESH FROZEN PLASMA [Concomitant]
     Active Substance: HUMAN PLASMA
     Indication: PROCOAGULANT THERAPY
     Dosage: 17 UNITS, UNK
     Route: 042
  3. ONDEXXYA [Suspect]
     Active Substance: ANDEXANET ALFA
     Dosage: 960 MG, OVER 120 MIN
     Route: 041
  4. APIXABAN [Concomitant]
     Active Substance: APIXABAN
     Indication: PRODUCT USED FOR UNKNOWN INDICATION
     Dosage: 5 MG, BID
     Route: 048
  5. RED BLOOD CELLS, CONCENTRATED [Concomitant]
     Active Substance: HUMAN RED BLOOD CELL
     Dosage: 13 UNITS, UNK
     Route: 042
  6. CALCIUM GLUCONATE. [Concomitant]
     Active Substance: CALCIUM GLUCONATE
     Indication: PROCOAGULANT THERAPY
     Dosage: 100 ML, UNK
  7. ONDEXXYA [Suspect]
     Active Substance: ANDEXANET ALFA
     Indication: PROCOAGULANT THERAPY
     Dosage: 800 MG BOLUS OVER 30 MIN
     Route: 040
  8. PROTHROMBIN COMPLEX CONCENTRATE NOS [Concomitant]
     Active Substance: COAGULATION FACTOR IX HUMAN\COAGULATION FACTOR VII HUMAN\COAGULATION FACTOR X HUMAN\PROTHROMBIN
     Indication: PROCOAGULANT THERAPY
     Dosage: 3500 IU, UNK
     Route: 042
  9. HEPARIN [Concomitant]
     Active Substance: HEPARIN SODIUM
     Dosage: 47.500 UNITS PREOPERATIVELY
  10. HEPARIN [Concomitant]
     Active Substance: HEPARIN SODIUM
     Dosage: POST OP DAY 1
  11. FIBRINOGEN [Concomitant]
     Active Substance: FIBRINOGEN HUMAN
     Indication: PROCOAGULANT THERAPY
     Dosage: 7 G, UNK
  12. NOREPINEPHRINE. [Concomitant]
     Active Substance: NOREPINEPHRINE
     Dosage: 0.25 MCG/KG/MIN
  13. PROTAMINE [Concomitant]
     Active Substance: PROTAMINE
     Indication: HEPARIN NEUTRALISATION THERAPY
  14. PLATELETS [Concomitant]
     Active Substance: HUMAN PLATELET, ALLOGENIC
     Indication: PROCOAGULANT THERAPY
     Dosage: 4 UNITS, UNK
     Route: 042

REACTIONS (3)
  - Acute kidney injury [Unknown]
  - Off label use [Unknown]
  - Anterior spinal artery syndrome [Unknown]
